FAERS Safety Report 6917243-5 (Version None)
Quarter: 2010Q3

REPORT INFORMATION
  Report Type: 
  Country: None (occurrence: None)
  Receive Date: 20100810
  Receipt Date: 20100726
  Transmission Date: 20110219
  Serious: Yes (Death, Other)
  Sender: FDA-Public Use
  Company Number: ES-ROCHE-720025

PATIENT
  Age: 52 Year
  Sex: Male

DRUGS (4)
  1. PEGINTERFERON ALFA-2A [Suspect]
     Indication: HEPATITIS C
     Route: 065
  2. RIBAVIRIN [Suspect]
     Indication: HEPATITIS C
     Dosage: MEAN DOSE: 14.52 +/- 2.21.
     Route: 065
  3. TACROLIMUS [Concomitant]
     Indication: IMMUNOSUPPRESSION
  4. PREDNISOLONE [Concomitant]
     Indication: IMMUNOSUPPRESSION

REACTIONS (2)
  - DRUG INTOLERANCE [None]
  - ESCHERICHIA INFECTION [None]
